FAERS Safety Report 17241422 (Version 1)
Quarter: 2020Q1

REPORT INFORMATION
  Report Type: Spontaneous
  Country: DE (occurrence: DE)
  Receive Date: 20200107
  Receipt Date: 20200107
  Transmission Date: 20200409
  Serious: Yes (Hospitalization)
  Sender: FDA-Public Use
  Company Number: DE-TEVA-2019-DE-1162157

PATIENT
  Age: 74 Year
  Sex: Female

DRUGS (8)
  1. TORASEMID ABZ 10MG [Suspect]
     Active Substance: TORSEMIDE
     Dosage: 10 MG, 2-1-0-0, TABLETS
     Route: 048
  2. PROPAFENON-RATIOPHARM 300MG FILMTABLETTEN [Concomitant]
     Dosage: 300 MG, 1-0-1-0, TABLETTEN
     Route: 048
  3. L-THYROXIN NATRIUM-CT 75 MICROGRAM TABLETTEN [Concomitant]
     Dosage: 75 MICROGRAMS, 1-0-0-0, TABLETS
     Route: 048
  4. BISOPROLOL 5 MG VON CT [Suspect]
     Active Substance: BISOPROLOL
     Dosage: 5 MG, 0.5-0-0.5-0, TABLETS
     Route: 048
  5. NOVAMINSULFON LICHTENSTEIN 500 MG TABLETTEN [Suspect]
     Active Substance: METAMIZOLE SODIUM
     Dosage: 500 MG, 1-0-1-0, TABLETS
     Route: 048
  6. SIMVA-ARISTO20 MG [Concomitant]
     Dosage: 20 MG, 0-0-0.5-0, TABLETTEN
     Route: 048
  7. ELIQUIS [Concomitant]
     Active Substance: APIXABAN
     Dosage: 5 MG, 1-0-1-0, TABLETS
     Route: 048
  8. SPIRIVA 18 MIKROGRAMM [Concomitant]
     Dosage: 18 MICROGRAMS, 1-0-0-0, CAPSULES
     Route: 055

REACTIONS (3)
  - Dyspnoea exertional [Recovered/Resolved]
  - Hypotension [Recovered/Resolved]
  - General physical health deterioration [Recovered/Resolved]
